FAERS Safety Report 4852597-5 (Version None)
Quarter: 2005Q4

REPORT INFORMATION
  Report Type: 
  Country: None (occurrence: None)
  Receive Date: 20051125
  Receipt Date: 20050815
  Transmission Date: 20060501
  Serious: Yes (Other)
  Sender: FDA-Public Use
  Company Number: 2005103757

PATIENT
  Age: 59 Year
  Sex: Male
  Weight: 106.5953 kg

DRUGS (9)
  1. TIKOSYN [Suspect]
     Indication: ATRIAL FLUTTER
     Dosage: 500 MCG (250 MCG, BID INTERVAL: EVERY DAY), ORAL
     Route: 048
     Dates: start: 20050713
  2. NORVASC [Concomitant]
  3. CRESTOR [Concomitant]
  4. FUROSEMIDE [Concomitant]
  5. ASPIRIN [Concomitant]
  6. COUMADIN [Concomitant]
  7. SLO-NIACIN (NICOTINIC ACID) [Concomitant]
  8. NEXIUM [Concomitant]
  9. BENADRYL [Concomitant]

REACTIONS (1)
  - DRUG INEFFECTIVE [None]
